FAERS Safety Report 19998052 (Version 2)
Quarter: 2021Q4

REPORT INFORMATION
  Report Type: Report from Study
  Country: US (occurrence: US)
  Receive Date: 20211026
  Receipt Date: 20211104
  Transmission Date: 20220303
  Serious: No
  Sender: FDA-Public Use
  Company Number: US-NOVARTISTESTPH-NVSC2021US243214

PATIENT
  Age: 65 Year
  Sex: Female

DRUGS (1)
  1. PROMACTA [Suspect]
     Active Substance: ELTROMBOPAG OLAMINE
     Indication: Immune thrombocytopenia
     Dosage: UNK
     Route: 065

REACTIONS (4)
  - Weight increased [Unknown]
  - Drug ineffective [Unknown]
  - Nausea [Unknown]
  - Frustration tolerance decreased [Unknown]
